FAERS Safety Report 17639151 (Version 3)
Quarter: 2021Q1

REPORT INFORMATION
  Report Type: Report from Study
  Country: US (occurrence: US)
  Receive Date: 20200407
  Receipt Date: 20210112
  Transmission Date: 20210419
  Serious: No
  Sender: FDA-Public Use
  Company Number: NVSC2020US089713

PATIENT
  Age: 77 Year
  Sex: Female

DRUGS (1)
  1. ENTRESTO [Suspect]
     Active Substance: SACUBITRIL\VALSARTAN
     Indication: PRODUCT USED FOR UNKNOWN INDICATION
     Dosage: UNK UNK, UNKNOWN
     Route: 065
     Dates: start: 2018

REACTIONS (7)
  - Therapeutic response decreased [Unknown]
  - Malaise [Unknown]
  - Product dispensing issue [Unknown]
  - Gait disturbance [Unknown]
  - Heart rate decreased [Unknown]
  - Pleural effusion [Unknown]
  - Asthenia [Unknown]

NARRATIVE: CASE EVENT DATE: 20201219
